FAERS Safety Report 14741858 (Version 1)
Quarter: 2018Q2

REPORT INFORMATION
  Report Type: Spontaneous
  Country: DE (occurrence: DE)
  Receive Date: 20180410
  Receipt Date: 20180410
  Transmission Date: 20180711
  Serious: Yes (Hospitalization)
  Sender: FDA-Public Use
  Company Number: DE-ALLERGAN-1819620US

PATIENT
  Age: 67 Year
  Sex: Male

DRUGS (10)
  1. TRUXAL [Concomitant]
     Active Substance: CHLORPROTHIXENE
     Indication: PRODUCT USED FOR UNKNOWN INDICATION
     Dosage: UNK
     Route: 065
     Dates: start: 20070425, end: 20071219
  2. HALDOL [Concomitant]
     Active Substance: HALOPERIDOL
     Indication: PRODUCT USED FOR UNKNOWN INDICATION
     Route: 065
     Dates: start: 2007, end: 2007
  3. TAXILAN [Concomitant]
     Indication: PRODUCT USED FOR UNKNOWN INDICATION
     Route: 065
     Dates: start: 2006, end: 2006
  4. PK MERZ [Concomitant]
     Active Substance: AMANTADINE SULFATE
     Indication: PRODUCT USED FOR UNKNOWN INDICATION
     Route: 065
     Dates: start: 2007, end: 2007
  5. SEROQUEL [Concomitant]
     Active Substance: QUETIAPINE FUMARATE
     Indication: PRODUCT USED FOR UNKNOWN INDICATION
     Route: 065
     Dates: start: 2007, end: 2007
  6. ESCITALOPRAM OXALATE - BP [Suspect]
     Active Substance: ESCITALOPRAM OXALATE
     Indication: PRODUCT USED FOR UNKNOWN INDICATION
     Dosage: 40 MG, UNK
     Route: 065
     Dates: start: 2008, end: 200905
  7. TAXILAN [Concomitant]
     Route: 065
     Dates: start: 2006, end: 2006
  8. METOPROLOL. [Concomitant]
     Active Substance: METOPROLOL
     Indication: PRODUCT USED FOR UNKNOWN INDICATION
     Route: 065
  9. TRILEPTAL [Concomitant]
     Active Substance: OXCARBAZEPINE
     Indication: PRODUCT USED FOR UNKNOWN INDICATION
     Route: 065
     Dates: start: 2007, end: 2007
  10. RISPERDAL [Concomitant]
     Active Substance: RISPERIDONE
     Indication: PRODUCT USED FOR UNKNOWN INDICATION
     Route: 065
     Dates: start: 2006, end: 2006

REACTIONS (21)
  - Ear infection [Unknown]
  - Sepsis [Unknown]
  - Coordination abnormal [Unknown]
  - Pyrexia [Unknown]
  - Hyperactive pharyngeal reflex [Unknown]
  - Skin disorder [Unknown]
  - Thrombosis [Unknown]
  - Off label use [Unknown]
  - Throat irritation [Unknown]
  - Urinary incontinence [Unknown]
  - Apparent life threatening event [Unknown]
  - Blood creatine phosphokinase abnormal [Unknown]
  - Staphylococcal infection [Unknown]
  - Gustometry abnormal [Unknown]
  - Pharyngitis [Unknown]
  - Impaired self-care [Unknown]
  - Withdrawal syndrome [Unknown]
  - Arrhythmia [Unknown]
  - Tooth loss [Unknown]
  - Intentional self-injury [Recovered/Resolved]
  - Tremor [Unknown]
